FAERS Safety Report 6021698-0 (Version None)
Quarter: 2008Q4

REPORT INFORMATION
  Report Type: 
  Country: None (occurrence: None)
  Receive Date: 20081229
  Receipt Date: 20081219
  Transmission Date: 20090506
  Serious: Yes (Other)
  Sender: FDA-Public Use
  Company Number: JP-MERCK-0812USA02220

PATIENT
  Age: 3 Year
  Sex: Female
  Weight: 12 kg

DRUGS (16)
  1. SINGULAIR [Suspect]
     Indication: COUGH
     Route: 048
     Dates: start: 20081115, end: 20081116
  2. SINGULAIR [Suspect]
     Route: 048
     Dates: start: 20080604, end: 20080604
  3. SINGULAIR [Suspect]
     Indication: WHEEZING
     Route: 048
     Dates: start: 20081115, end: 20081116
  4. SINGULAIR [Suspect]
     Route: 048
     Dates: start: 20080604, end: 20080604
  5. ASVERIN [Concomitant]
     Indication: COUGH
     Route: 048
     Dates: start: 20081115, end: 20081120
  6. ASVERIN [Concomitant]
     Route: 048
     Dates: start: 20080604, end: 20080609
  7. ALIMEZINE [Concomitant]
     Indication: RHINORRHOEA
     Route: 048
     Dates: start: 20081115, end: 20081120
  8. ALIMEZINE [Concomitant]
     Route: 048
     Dates: start: 20080604, end: 20080609
  9. MUCODYNE [Concomitant]
     Indication: PRODUCTIVE COUGH
     Route: 048
     Dates: start: 20081115, end: 20081120
  10. MUCODYNE [Concomitant]
     Route: 048
     Dates: start: 20080604, end: 20080609
  11. SENECA SNAKEROOT [Concomitant]
     Indication: COUGH
     Route: 048
     Dates: start: 20081115, end: 20081120
  12. BROCIN [Concomitant]
     Indication: COUGH
     Route: 048
     Dates: start: 20081115, end: 20081120
  13. CODEINE PHOSPHATE [Concomitant]
     Indication: COUGH
     Route: 048
     Dates: start: 20081115, end: 20081120
  14. CODEINE PHOSPHATE [Concomitant]
     Route: 048
     Dates: start: 20080604, end: 20080609
  15. HOKUNALIN [Concomitant]
     Indication: WHEEZING
     Route: 061
     Dates: start: 20081115, end: 20081120
  16. HOKUNALIN [Concomitant]
     Route: 061
     Dates: start: 20080604, end: 20080609

REACTIONS (3)
  - ABNORMAL BEHAVIOUR [None]
  - AGITATION [None]
  - DELIRIUM [None]
